FAERS Safety Report 5874114-3 (Version None)
Quarter: 2008Q3

REPORT INFORMATION
  Report Type: 
  Country: None (occurrence: None)
  Receive Date: 20080908
  Receipt Date: 20080903
  Transmission Date: 20090109
  Serious: Yes (Life-Threatening, Hospitalization, Other)
  Sender: FDA-Public Use
  Company Number: JP-BRISTOL-MYERS SQUIBB COMPANY-14314819

PATIENT
  Age: 70 Year
  Sex: Female

DRUGS (5)
  1. TAXOL [Suspect]
     Indication: UTERINE CANCER
     Dosage: FROM 25JUL07-09JAN08 RECEIVED 12 COURSES OF TAXOL 80MG/M2 BIWEEKLY
     Route: 041
     Dates: start: 20080820, end: 20080820
  2. PARAPLATIN [Suspect]
     Indication: UTERINE CANCER
     Route: 041
     Dates: start: 20080820, end: 20080820
  3. DECADRON SRC [Concomitant]
     Route: 041
     Dates: start: 20080820, end: 20080820
  4. KYTRIL [Concomitant]
     Route: 041
     Dates: start: 20080820, end: 20080820
  5. ZANTAC [Concomitant]
     Route: 041
     Dates: start: 20080820, end: 20080820

REACTIONS (4)
  - ALTERED STATE OF CONSCIOUSNESS [None]
  - ELECTROLYTE IMBALANCE [None]
  - PULMONARY OEDEMA [None]
  - STRESS CARDIOMYOPATHY [None]
